FAERS Safety Report 25928417 (Version 1)
Quarter: 2025Q4

REPORT INFORMATION
  Report Type: Spontaneous
  Country: EU (occurrence: None)
  Receive Date: 20251016
  Receipt Date: 20251016
  Transmission Date: 20260117
  Serious: Yes (Disabling, Other)
  Sender: UCB
  Company Number: EU-UCBSA-2025063785

PATIENT
  Age: 71 Year
  Weight: 76 kg

DRUGS (1)
  1. BIMZELX [Suspect]
     Active Substance: BIMEKIZUMAB-BKZX
     Indication: Psoriasis
     Dosage: 320 MILLIGRAM, EV 8 WEEKS

REACTIONS (2)
  - Oesophageal candidiasis [Recovered/Resolved]
  - Oropharyngeal candidiasis [Unknown]
